FAERS Safety Report 10441075 (Version 1)
Quarter: 2014Q3

REPORT INFORMATION
  Report Type: Spontaneous
  Country: GB (occurrence: GB)
  Receive Date: 20140909
  Receipt Date: 20140909
  Transmission Date: 20150326
  Serious: Yes (Hospitalization, Other)
  Sender: FDA-Public Use
  Company Number: GB-JNJFOC-20140903776

PATIENT
  Sex: Female

DRUGS (1)
  1. NICOTINE TRANSDERMAL SYSTEM [Suspect]
     Active Substance: NICOTINE
     Indication: SMOKING CESSATION THERAPY
     Route: 065

REACTIONS (72)
  - Pyelonephritis [Unknown]
  - Oligohydramnios [Unknown]
  - Vasodilatation [Unknown]
  - Vaginal haemorrhage [Unknown]
  - Hypothyroidism [Unknown]
  - Intervertebral disc protrusion [Unknown]
  - Vaginal infection [Unknown]
  - Road traffic accident [Unknown]
  - Renal failure [Unknown]
  - Malaise [Unknown]
  - Dyspnoea [Unknown]
  - Vomiting [Unknown]
  - Dizziness [Unknown]
  - Vulvovaginal candidiasis [Unknown]
  - Adverse event [Unknown]
  - Eclampsia [Unknown]
  - Fall [Unknown]
  - Hypoaesthesia [Unknown]
  - Kidney infection [Unknown]
  - Pollakiuria [Unknown]
  - Premature separation of placenta [Unknown]
  - Visual impairment [Unknown]
  - Stillbirth [Unknown]
  - Oedema [Unknown]
  - Postpartum haemorrhage [Unknown]
  - Complication of pregnancy [Unknown]
  - Premature rupture of membranes [Unknown]
  - Pre-eclampsia [Unknown]
  - Chest pain [Unknown]
  - Cholelithiasis [Unknown]
  - Pain in extremity [Unknown]
  - Photopsia [Unknown]
  - Sensory disturbance [Unknown]
  - Blindness transient [Unknown]
  - Uterine contractions abnormal [Unknown]
  - Abnormal dreams [Unknown]
  - Palpitations [Unknown]
  - Premature labour [Unknown]
  - Pleural effusion [Unknown]
  - Polyhydramnios [Unknown]
  - Proteinuria [Unknown]
  - Symphysiolysis [Unknown]
  - Urinary tract infection [Unknown]
  - Hepatic failure [Unknown]
  - Vision blurred [Unknown]
  - Blood pressure increased [Unknown]
  - Nausea [Unknown]
  - Tachycardia [Unknown]
  - Constipation [Unknown]
  - Migraine [Unknown]
  - Caesarean section [Unknown]
  - Back pain [Unknown]
  - Skin disorder [Unknown]
  - Headache [Unknown]
  - Type 1 diabetes mellitus [Unknown]
  - Blood pressure decreased [Unknown]
  - Disseminated intravascular coagulation [Unknown]
  - Abortion spontaneous [Unknown]
  - Gestational diabetes [Unknown]
  - Exposure during pregnancy [Unknown]
  - Haemorrhage in pregnancy [Unknown]
  - Parvovirus infection [Unknown]
  - Oropharyngeal pain [Unknown]
  - Syncope [Unknown]
  - Ultrasound Doppler abnormal [Unknown]
  - Influenza like illness [Unknown]
  - Diarrhoea [Unknown]
  - Application site reaction [Unknown]
  - Abdominal pain [Unknown]
  - Vaginal discharge [Unknown]
  - Overdose [Unknown]
  - Drug ineffective [Unknown]
